FAERS Safety Report 7898267-0 (Version None)
Quarter: 2011Q4

REPORT INFORMATION
  Report Type: 
  Country: None (occurrence: None)
  Receive Date: 20111107
  Receipt Date: 20111026
  Transmission Date: 20120403
  Serious: Yes (Hospitalization)
  Sender: FDA-Public Use
  Company Number: US-GLAXOSMITHKLINE-B0756302A

PATIENT
  Age: 63 Year
  Sex: Male

DRUGS (8)
  1. GLIPIZIDE [Concomitant]
  2. NORVASC [Concomitant]
  3. AVANDAMET [Suspect]
     Indication: DIABETES MELLITUS
     Dosage: 1TAB PER DAY
     Route: 048
     Dates: start: 20060816, end: 20061201
  4. HYZAAR [Concomitant]
  5. PREVACID [Concomitant]
  6. HYDROCHLOROTHIAZIDE [Concomitant]
  7. AVANDIA [Suspect]
     Indication: DIABETES MELLITUS
     Dosage: 4MG PER DAY
     Route: 048
     Dates: start: 20060717, end: 20060815
  8. LOPRESSOR [Concomitant]

REACTIONS (5)
  - MYOCARDIAL INFARCTION [None]
  - CEREBROVASCULAR ACCIDENT [None]
  - CARDIAC FAILURE CONGESTIVE [None]
  - LOWER LIMB FRACTURE [None]
  - ARTERIAL DISORDER [None]
